FAERS Safety Report 15555670 (Version 1)
Quarter: 2018Q4

REPORT INFORMATION
  Report Type: Report from Study
  Country: US (occurrence: US)
  Receive Date: 20181026
  Receipt Date: 20181026
  Transmission Date: 20190205
  Serious: Yes (Other)
  Sender: FDA-Public Use
  Company Number: PHEH2018US044987

PATIENT
  Sex: Male
  Weight: 143.79 kg

DRUGS (1)
  1. OMNITROPE [Suspect]
     Active Substance: SOMATROPIN
     Indication: HYPOPITUITARISM
     Dosage: 4 MG, QD
     Route: 058
     Dates: start: 20121030

REACTIONS (10)
  - Lower limb fracture [Unknown]
  - Road traffic accident [Unknown]
  - Muscular weakness [Unknown]
  - Gastroenteritis [Unknown]
  - Weight decreased [Unknown]
  - Vitamin D decreased [Unknown]
  - Irritable bowel syndrome [Unknown]
  - Diarrhoea [Unknown]
  - Vomiting [Unknown]
  - Ligament rupture [Unknown]

NARRATIVE: CASE EVENT DATE: 2016
